FAERS Safety Report 19938573 (Version 3)
Quarter: 2022Q1

REPORT INFORMATION
  Report Type: Report from Study
  Country: CA (occurrence: CA)
  Receive Date: 20211011
  Receipt Date: 20220329
  Transmission Date: 20220423
  Serious: Yes (Other)
  Sender: FDA-Public Use
  Company Number: CA-TAKEDA-2021TUS022506

PATIENT
  Age: 29 Year
  Sex: Female

DRUGS (6)
  1. VEDOLIZUMAB [Suspect]
     Active Substance: VEDOLIZUMAB
     Indication: Crohn^s disease
     Dosage: 300 MILLIGRAM
     Route: 042
     Dates: start: 20210216
  2. VEDOLIZUMAB [Suspect]
     Active Substance: VEDOLIZUMAB
     Dosage: 300 MILLIGRAM
     Route: 042
  3. VEDOLIZUMAB [Suspect]
     Active Substance: VEDOLIZUMAB
     Dosage: 300 MILLIGRAM, Q4WEEKS
     Route: 042
     Dates: start: 20211021
  4. VEDOLIZUMAB [Suspect]
     Active Substance: VEDOLIZUMAB
     Dosage: 300 MILLIGRAM, Q4WEEKS
     Route: 042
  5. PREDNISONE [Concomitant]
     Active Substance: PREDNISONE
     Dosage: 50 MILLIGRAM
  6. VYVANSE [Concomitant]
     Active Substance: LISDEXAMFETAMINE DIMESYLATE
     Dosage: 150 MILLIGRAM

REACTIONS (8)
  - Crohn^s disease [Unknown]
  - Diarrhoea [Recovered/Resolved]
  - Dizziness [Unknown]
  - Abdominal pain [Recovered/Resolved]
  - Swelling [Recovered/Resolved]
  - Erythema [Unknown]
  - Pruritus [Unknown]
  - Off label use [Unknown]

NARRATIVE: CASE EVENT DATE: 20210909
